FAERS Safety Report 10061124 (Version 2)
Quarter: 2014Q2

REPORT INFORMATION
  Report Type: Report from Study
  Country: NI (occurrence: NI)
  Receive Date: 20140406
  Receipt Date: 20140509
  Transmission Date: 20141212
  Serious: Yes (Hospitalization)
  Sender: FDA-Public Use
  Company Number: NI-US-EMD SERONO, INC.-7279756

PATIENT
  Age: 35 Year
  Sex: Male
  Weight: 61 kg

DRUGS (1)
  1. REBIF [Suspect]
     Indication: MULTIPLE SCLEROSIS
     Dates: start: 20140314

REACTIONS (14)
  - Muscle spasms [Not Recovered/Not Resolved]
  - Discomfort [Not Recovered/Not Resolved]
  - Hypoaesthesia [Not Recovered/Not Resolved]
  - Musculoskeletal stiffness [Unknown]
  - Burning sensation [Unknown]
  - Convulsion [Not Recovered/Not Resolved]
  - Sensory loss [Unknown]
  - Hypoaesthesia [Unknown]
  - Limb discomfort [Unknown]
  - Muscle spasms [Not Recovered/Not Resolved]
  - Insomnia [Unknown]
  - Paraesthesia [Unknown]
  - Hypoaesthesia [Unknown]
  - Pruritus [Unknown]
